FAERS Safety Report 5492180-4 (Version None)
Quarter: 2007Q4

REPORT INFORMATION
  Report Type: 
  Country: None (occurrence: None)
  Receive Date: 20071022
  Receipt Date: 20071009
  Transmission Date: 20080405
  Serious: Yes (Death, Hospitalization)
  Sender: FDA-Public Use
  Company Number: JP-ROCHE-523792

PATIENT
  Age: 7 Month
  Sex: Male

DRUGS (18)
  1. DENOSINE IV [Suspect]
     Indication: CYTOMEGALOVIRUS INFECTION
     Dosage: INFUSION
     Route: 041
     Dates: start: 20040623, end: 20040706
  2. DENOSINE IV [Suspect]
     Dosage: INFUSION
     Route: 041
     Dates: start: 20040727, end: 20040807
  3. DENOSINE IV [Suspect]
     Route: 041
     Dates: start: 20040808, end: 20040810
  4. ASVERIN [Suspect]
     Route: 048
     Dates: start: 20040720
  5. ERYTHROCIN LACTOBIONATE [Suspect]
     Route: 048
     Dates: start: 20040714
  6. MUCODYNE [Suspect]
     Route: 048
     Dates: start: 20040720
  7. NEOPHYLLIN [Suspect]
     Route: 041
     Dates: start: 20040724, end: 20040730
  8. ONON [Suspect]
     Route: 065
     Dates: start: 20040725
  9. VENOGLOBULIN [Suspect]
     Indication: CYTOMEGALOVIRUS INFECTION
     Route: 041
     Dates: start: 20040727, end: 20040727
  10. SOLU-MEDROL [Suspect]
     Route: 041
     Dates: start: 20040727, end: 20040730
  11. CARBENIN [Suspect]
     Indication: BACTERIAL INFECTION
     Route: 041
     Dates: start: 20040731, end: 20040807
  12. BIAPENEM [Suspect]
     Indication: BACTERIAL INFECTION
     Dosage: TRADE NAME REPORTED AS OMEGACIN
     Route: 041
     Dates: start: 20040807
  13. VANCOMYCIN [Suspect]
     Route: 041
     Dates: start: 20040807, end: 20040819
  14. 1 CONCOMITANT DRUG [Concomitant]
     Dosage: DRUG NAME REPORTED AS ADRENAL HORMONE PREPARATIONS
     Dates: start: 20040729, end: 20040801
  15. 1 CONCOMITANT DRUG [Concomitant]
     Dosage: DRUG NAME REPORTED AS ADRENAL HORMONE PREPARATIONS
     Route: 055
     Dates: start: 20040805
  16. ESPO [Concomitant]
     Route: 042
     Dates: start: 20040805
  17. 1 CONCOMITANT DRUG [Concomitant]
     Dosage: REPORTED AS UNKNOWN DRUG
  18. FOSCARNET SODIUM [Concomitant]
     Route: 041

REACTIONS (3)
  - RESPIRATORY FAILURE [None]
  - STAPHYLOCOCCAL SEPSIS [None]
  - THROMBOCYTOPENIA [None]
